FAERS Safety Report 7650408-6 (Version None)
Quarter: 2011Q3

REPORT INFORMATION
  Report Type: 
  Country: None (occurrence: None)
  Receive Date: 20110802
  Receipt Date: 20110714
  Transmission Date: 20111222
  Serious: Yes (Hospitalization)
  Sender: FDA-Public Use
  Company Number: US-GLAXOSMITHKLINE-A0834284A

PATIENT
  Age: 73 Year
  Sex: Male
  Weight: 102 kg

DRUGS (9)
  1. ALTACE [Concomitant]
  2. ALBUTEROL SULFATE AUTOHALER [Concomitant]
  3. COMBIVENT [Concomitant]
  4. INSULIN [Concomitant]
  5. FLONASE [Concomitant]
  6. ATENOLOL [Concomitant]
  7. GLUCOVANCE [Concomitant]
  8. AVANDIA [Suspect]
     Indication: TYPE 2 DIABETES MELLITUS
     Dosage: 4MG PER DAY
     Route: 048
     Dates: start: 20030112, end: 20090108
  9. ZYRTEC [Concomitant]

REACTIONS (5)
  - CARDIAC FAILURE CONGESTIVE [None]
  - CORONARY ARTERY DISEASE [None]
  - AORTIC VALVE REPLACEMENT [None]
  - MYOCARDIAL INFARCTION [None]
  - ATRIAL FIBRILLATION [None]
